FAERS Safety Report 7011798-0 (Version None)
Quarter: 2010Q3

REPORT INFORMATION
  Report Type: 
  Country: None (occurrence: None)
  Receive Date: 20100923
  Receipt Date: 20090622
  Transmission Date: 20110219
  Serious: No
  Sender: FDA-Public Use
  Company Number: US-WYE-H09898309

PATIENT
  Sex: Female
  Weight: 80.81 kg

DRUGS (6)
  1. PREMARIN [Suspect]
     Indication: HORMONE THERAPY
     Route: 048
     Dates: start: 20090601
  2. SINGULAIR [Concomitant]
  3. ADVAIR DISKUS 100/50 [Concomitant]
  4. BUSPAR [Concomitant]
  5. ALBUTEROL [Concomitant]
  6. NORVASC [Concomitant]

REACTIONS (3)
  - ALLERGY TO ANIMAL [None]
  - ASTHMA [None]
  - CONDITION AGGRAVATED [None]
